FAERS Safety Report 22267532 (Version 1)
Quarter: 2023Q2

REPORT INFORMATION
  Report Type: Spontaneous
  Country: US (occurrence: US)
  Receive Date: 20230429
  Receipt Date: 20230429
  Transmission Date: 20230721
  Serious: No
  Sender: FDA-Public Use
  Company Number: US-PFIZER INC-PV202300074743

PATIENT
  Age: 25 Year
  Sex: Female
  Weight: 79.38 kg

DRUGS (2)
  1. NURTEC ODT [Suspect]
     Active Substance: RIMEGEPANT SULFATE
     Indication: Migraine
     Dosage: 75 MG, AS NEEDED, (PLACE 1 TABLET ON/UNDER THE TONGUE AS NEEDED FOR MIGRAINE. MAX 1 TABLET PER DAY)
     Route: 048
  2. ZOLOFT [Concomitant]
     Active Substance: SERTRALINE HYDROCHLORIDE
     Indication: Anxiety
     Dosage: 75 MG
     Dates: start: 20200301

REACTIONS (5)
  - Rash [Unknown]
  - Urticaria [Unknown]
  - Pruritus [Unknown]
  - Dyspnoea [Unknown]
  - Hypersensitivity [Unknown]
